FAERS Safety Report 8241384 (Version 4)
Quarter: 2013Q1

REPORT INFORMATION
  Report Type: Spontaneous
  Country: US (occurrence: US)
  Receive Date: 20111111
  Receipt Date: 20130131
  Transmission Date: 20140127
  Serious: Yes (Hospitalization)
  Sender: FDA-Public Use
  Company Number: US-GLAXOSMITHKLINE-A0952530A

PATIENT
  Age: 50 Year
  Sex: Female
  Weight: 84.1 kg

DRUGS (2)
  1. ADVAIR [Suspect]
     Indication: PRODUCT USED FOR UNKNOWN INDICATION
     Route: 055
     Dates: start: 20100325
  2. VENTOLIN [Suspect]
     Indication: PRODUCT USED FOR UNKNOWN INDICATION
     Route: 055
     Dates: start: 20110804

REACTIONS (3)
  - Asthma [Recovered/Resolved]
  - Hospitalisation [Unknown]
  - Chronic obstructive pulmonary disease [Recovered/Resolved]
